FAERS Safety Report 5028585-5 (Version None)
Quarter: 2006Q2

REPORT INFORMATION
  Report Type: 
  Country: None (occurrence: None)
  Receive Date: 20060615
  Receipt Date: 20060615
  Transmission Date: 20061013
  Serious: Yes (Life-Threatening, Hospitalization)
  Sender: FDA-Public Use
  Company Number: None

PATIENT
  Age: 89 Year
  Sex: Female
  Weight: 93 kg

DRUGS (11)
  1. ATARAX [Suspect]
     Indication: PRURITUS
     Dosage: 50 MG PO Q 6 HOURS
     Route: 048
  2. LASIX [Concomitant]
  3. ASPIRIN [Concomitant]
  4. PRANDIN [Concomitant]
  5. LANTUS [Concomitant]
  6. CITRUCEL [Concomitant]
  7. VITAMIN [Concomitant]
  8. TYLENOL ES [Concomitant]
  9. PULMICORT [Concomitant]
  10. LUMIGAN [Concomitant]
  11. NEXIUM [Concomitant]

REACTIONS (4)
  - CONDITION AGGRAVATED [None]
  - LETHARGY [None]
  - OXYGEN SATURATION DECREASED [None]
  - PRURITUS [None]
